FAERS Safety Report 9168657 (Version 1)
Quarter: 2013Q1

REPORT INFORMATION
  Report Type: Spontaneous
  Country: DE (occurrence: None)
  Receive Date: 20130311
  Receipt Date: 20130311
  Transmission Date: 20140127
  Serious: Yes (Other)
  Sender: FDA-Public Use
  Company Number: 2013-03526

PATIENT
  Age: 93 Year
  Sex: Female

DRUGS (2)
  1. OXALIPLATIN [Suspect]
     Indication: NON-HODGKIN^S LYMPHOMA
     Route: 042
  2. GEMCITABINE (GEMCITABINE) [Concomitant]

REACTIONS (4)
  - Bronchospasm [None]
  - Dyspnoea [None]
  - Rash [None]
  - Rhonchi [None]
